FAERS Safety Report 8929435 (Version 1)
Quarter: 2012Q4

REPORT INFORMATION
  Report Type: Spontaneous
  Country: US (occurrence: None)
  Receive Date: 20121120
  Receipt Date: 20121120
  Transmission Date: 20130627
  Serious: Yes (Other)
  Sender: FDA-Public Use
  Company Number: FK201203338

PATIENT
  Age: 50 Year
  Sex: Male

DRUGS (3)
  1. HEPARIN (MANUFACTURER UNKNOWN)(HEPARIN)(HEPARIN) [Suspect]
     Indication: PRODUCT USED FOR UNKNOWN INDICATION
     Dosage: initiation of haemodialysis
  2. HEPARIN (MANUFACTURER UNKNOWN)(HEPARIN)(HEPARIN) [Suspect]
     Indication: PRODUCT USED FOR UNKNOWN INDICATION
     Dosage: per hour throughout haemodialysis
  3. SALINE SOLUTION (SODIUM CHLORIDE) [Concomitant]

REACTIONS (9)
  - Large intestine perforation [None]
  - Intestinal ischaemia [None]
  - Gastrointestinal haemorrhage [None]
  - Procedural hypotension [None]
  - Abdominal discomfort [None]
  - Dizziness [None]
  - White blood cell count increased [None]
  - Platelet count increased [None]
  - Haemoglobin decreased [None]
